FAERS Safety Report 9388040 (Version 4)
Quarter: 2013Q4

REPORT INFORMATION
  Report Type: Spontaneous
  Country: US (occurrence: None)
  Receive Date: 20130701
  Receipt Date: 20131002
  Transmission Date: 20140711
  Serious: Yes (Hospitalization)
  Sender: FDA-Public Use
  Company Number: 2013SGN00370

PATIENT
  Age: 66 Year
  Sex: Male

DRUGS (16)
  1. BRENTUXIMAB VEDOTIN [Suspect]
     Indication: HODGKIN^S DISEASE
     Route: 042
     Dates: start: 20130322, end: 20130503
  2. IFOSFAMIDE [Suspect]
     Indication: HODGKIN^S DISEASE
     Dates: start: 20130510, end: 20130605
  3. CARBOPLATIN [Suspect]
     Indication: HODGKIN^S DISEASE
     Dates: start: 20130512, end: 20130605
  4. ETOPOSIDE [Suspect]
     Indication: HODGKIN^S DISEASE
     Dates: start: 20130510, end: 20130605
  5. ACYCLOVIR (ACYCLOVIR) [Concomitant]
  6. AZELASTINE (AZELASTINE) [Concomitant]
  7. ESCITALOPRAM (ESCITALOPRAM) [Concomitant]
  8. HYDROXYZINE (HYDROXYZINE HYDROCHLORIDE) [Concomitant]
  9. LOPERAMIDE HCL (LOPERAMIDE HYDROCHLORIDE) [Concomitant]
  10. APREPITANT (APREPITANT) [Concomitant]
  11. MIRTAZAPINE (MIRTAZAPINE) [Concomitant]
  12. ONDANSETRON (ONDANSETRON) [Concomitant]
  13. PEGFILGRASTIM (PEGFILGRASTIM) [Concomitant]
  14. PRAVASTATIN (PRAVASTATIN) [Concomitant]
  15. VITAMIN A (VITAMIN A) [Concomitant]
  16. MESNA (MESNA) [Suspect]

REACTIONS (9)
  - Febrile neutropenia [None]
  - Dyspnoea [None]
  - Cough [None]
  - Tachycardia [None]
  - Sputum discoloured [None]
  - Diarrhoea [None]
  - Nasal congestion [None]
  - Parainfluenzae virus infection [None]
  - Lower respiratory tract infection [None]
